FAERS Safety Report 9836469 (Version 3)
Quarter: 2015Q4

REPORT INFORMATION
  Report Type: Report from Study
  Country: CA (occurrence: CA)
  Receive Date: 20140123
  Receipt Date: 20151102
  Transmission Date: 20160305
  Serious: Yes (Other)
  Sender: FDA-Public Use
  Company Number: CA-ROCHE-1333671

PATIENT
  Age: 67 Year
  Sex: Male
  Weight: 83.9 kg

DRUGS (9)
  1. DIPHENHYDRAMINE HCL [Concomitant]
     Active Substance: DIPHENHYDRAMINE HYDROCHLORIDE
     Indication: PREMEDICATION
     Route: 042
  2. IMMUNOGLOBULIN [Concomitant]
     Active Substance: HUMAN IMMUNOGLOBULIN G
     Route: 042
  3. RITUXAN [Suspect]
     Active Substance: RITUXIMAB
     Dosage: 1ST RPAP DOSE,  MOST RECENT DOSE ON 15/OCT/2013, MOST RECENT DOSE 27/OCT/2015
     Route: 042
     Dates: start: 20120314
  4. XANAX [Concomitant]
     Active Substance: ALPRAZOLAM
  5. RITUXAN [Suspect]
     Active Substance: RITUXIMAB
     Indication: WALDENSTROM^S MACROGLOBULINAEMIA
     Route: 042
     Dates: start: 20100701
  6. ACETAMINOPHEN. [Concomitant]
     Active Substance: ACETAMINOPHEN
     Indication: PREMEDICATION
     Route: 048
  7. VALTREX [Concomitant]
     Active Substance: VALACYCLOVIR HYDROCHLORIDE
  8. ZOLOFT [Concomitant]
     Active Substance: SERTRALINE HYDROCHLORIDE
  9. NORVASC [Concomitant]
     Active Substance: AMLODIPINE BESYLATE

REACTIONS (7)
  - Infusion related reaction [Recovered/Resolved]
  - Product use issue [Unknown]
  - Prostatomegaly [Not Recovered/Not Resolved]
  - Pruritus [Recovered/Resolved]
  - Fatigue [Recovered/Resolved]
  - Influenza [Not Recovered/Not Resolved]
  - Therapeutic product ineffective [Unknown]

NARRATIVE: CASE EVENT DATE: 2013
